FAERS Safety Report 7012891-9 (Version None)
Quarter: 2010Q3

REPORT INFORMATION
  Report Type: 
  Country: None (occurrence: None)
  Receive Date: 20100922
  Receipt Date: 20100604
  Transmission Date: 20110219
  Serious: Yes (Death)
  Sender: FDA-Public Use
  Company Number: 1000016329

PATIENT
  Sex: Female

DRUGS (1)
  1. DINOPROSTONE (DINOPROSTONE) (10 MILLIGRAM) [Suspect]
     Indication: LABOUR INDUCTION
     Dosage: 10 MG (10 MG), VAGINAL
     Route: 067
     Dates: start: 20100501, end: 20100501

REACTIONS (2)
  - ANAPHYLACTOID SYNDROME OF PREGNANCY [None]
  - DRUG EXPOSURE DURING PREGNANCY [None]
